FAERS Safety Report 20281912 (Version 1)
Quarter: 2022Q1

REPORT INFORMATION
  Report Type: Report from Study
  Country: BR (occurrence: BR)
  Receive Date: 20220103
  Receipt Date: 20220103
  Transmission Date: 20220424
  Serious: Yes (Hospitalization, Other)
  Sender: FDA-Public Use
  Company Number: BR-NOVARTISPH-NVSC2021BR299732

PATIENT
  Sex: Female

DRUGS (3)
  1. COSENTYX [Suspect]
     Active Substance: SECUKINUMAB
     Indication: Product used for unknown indication
     Dosage: 150 MG
     Route: 065
     Dates: start: 20210203
  2. COSENTYX [Suspect]
     Active Substance: SECUKINUMAB
     Dosage: 300 MG, QMO
     Route: 065
     Dates: start: 20210824
  3. COSENTYX [Suspect]
     Active Substance: SECUKINUMAB
     Dosage: UNK
     Route: 065
     Dates: start: 20211215

REACTIONS (21)
  - Intestinal tuberculosis [Unknown]
  - Diarrhoea [Unknown]
  - COVID-19 [Unknown]
  - Endometriosis [Unknown]
  - Heavy menstrual bleeding [Unknown]
  - Anaemia [Unknown]
  - Haemorrhage [Unknown]
  - Haematochezia [Unknown]
  - Decreased immune responsiveness [Unknown]
  - Adenomyosis [Unknown]
  - Respiratory tract infection [Unknown]
  - Asthma [Unknown]
  - Oropharyngeal plaque [Unknown]
  - Arthropathy [Unknown]
  - Joint swelling [Unknown]
  - Peripheral swelling [Unknown]
  - Head discomfort [Unknown]
  - Limb discomfort [Unknown]
  - Pharyngitis [Unknown]
  - Psoriasis [Unknown]
  - Skin fissures [Unknown]

NARRATIVE: CASE EVENT DATE: 20210101
